FAERS Safety Report 7257801-4 (Version None)
Quarter: 2011Q1

REPORT INFORMATION
  Report Type: 
  Country: None (occurrence: None)
  Receive Date: 20110129
  Receipt Date: 20100608
  Transmission Date: 20110831
  Serious: No
  Sender: FDA-Public Use
  Company Number: US-ABBOTT-10P-163-0642507-00

PATIENT
  Sex: Male
  Weight: 83.99 kg

DRUGS (2)
  1. HUMIRA [Suspect]
     Indication: CROHN'S DISEASE
     Dates: start: 20090901
  2. LOTRELL [Concomitant]
     Indication: HYPERTENSION

REACTIONS (3)
  - DEVICE MALFUNCTION [None]
  - DRUG DOSE OMISSION [None]
  - ARTHRALGIA [None]
